FAERS Safety Report 20261729 (Version 2)
Quarter: 2022Q1

REPORT INFORMATION
  Report Type: Spontaneous
  Country: BE (occurrence: BE)
  Receive Date: 20211231
  Receipt Date: 20220112
  Transmission Date: 20220423
  Serious: Yes (Life-Threatening, Other)
  Sender: FDA-Public Use
  Company Number: BE-TEVA-2021-BE-1992938

PATIENT
  Age: 54 Year
  Sex: Male

DRUGS (6)
  1. FLUOROURACIL [Suspect]
     Active Substance: FLUOROURACIL
     Indication: Pancreatic carcinoma metastatic
     Dosage: FOLFIRINOX REGIMEN
     Route: 065
  2. LEUCOVORIN [Suspect]
     Active Substance: LEUCOVORIN
     Indication: Pancreatic carcinoma metastatic
     Dosage: FOLFIRINOX REGIMEN
     Route: 065
  3. OXALIPLATIN [Suspect]
     Active Substance: OXALIPLATIN
     Indication: Pancreatic carcinoma metastatic
     Dosage: FOLFIRINOX REGIMEN
     Route: 065
  4. IRINOTECAN [Suspect]
     Active Substance: IRINOTECAN
     Indication: Pancreatic carcinoma metastatic
     Dosage: FOLFIRINOX REGIMEN
     Route: 065
  5. OLAPARIB [Suspect]
     Active Substance: OLAPARIB
     Indication: Pancreatic carcinoma metastatic
     Dosage: MAINTENANCE THERAPY
     Route: 065
     Dates: start: 202007
  6. CISPLATIN [Concomitant]
     Active Substance: CISPLATIN
     Indication: Pancreatic carcinoma metastatic
     Dosage: SIX CYCLES
     Route: 065

REACTIONS (2)
  - Drug ineffective [Unknown]
  - Drug resistance [Unknown]

NARRATIVE: CASE EVENT DATE: 20200101
